FAERS Safety Report 10385327 (Version 1)
Quarter: 2014Q3

REPORT INFORMATION
  Report Type: Spontaneous
  Country: CA (occurrence: None)
  Receive Date: 20140808
  Receipt Date: 20140808
  Transmission Date: 20150326
  Serious: Yes (Other)
  Sender: FDA-Public Use
  Company Number: 2007S1002277

PATIENT
  Age: 58 Year
  Sex: Female

DRUGS (5)
  1. PAXIL [Concomitant]
     Active Substance: PAROXETINE HYDROCHLORIDE
  2. FLEET [Suspect]
     Active Substance: BISACODYL\GLYCERIN\MINERAL OIL\SODIUM PHOSPHATE, DIBASIC\SODIUM PHOSPHATE, MONOBASIC
     Indication: COLONOSCOPY
     Route: 054
  3. COLACE [Concomitant]
     Active Substance: DOCUSATE SODIUM
  4. PHOSPHO-SODA [Suspect]
     Active Substance: SODIUM PHOSPHATE, DIBASIC\SODIUM PHOSPHATE, MONOBASIC
     Indication: COLONOSCOPY
     Route: 048
     Dates: start: 20060503, end: 20060503
  5. ZITHROMAX [Concomitant]
     Active Substance: AZITHROMYCIN DIHYDRATE

REACTIONS (17)
  - Swelling face [None]
  - Fatigue [None]
  - Hypoaesthesia [None]
  - Hyperparathyroidism secondary [None]
  - Tubulointerstitial nephritis [None]
  - Lip swelling [None]
  - Hypersensitivity [None]
  - Decreased appetite [None]
  - Renal failure [None]
  - Acute phosphate nephropathy [None]
  - Weight decreased [None]
  - Nephrogenic anaemia [None]
  - Renal failure chronic [None]
  - Renal mass [None]
  - Dizziness [None]
  - Migraine [None]
  - Renal papillary necrosis [None]
